FAERS Safety Report 7942626-4 (Version None)
Quarter: 2011Q4

REPORT INFORMATION
  Report Type: 
  Country: None (occurrence: None)
  Receive Date: 20111128
  Receipt Date: 20111118
  Transmission Date: 20120403
  Serious: Yes (Death, Other)
  Sender: FDA-Public Use
  Company Number: US-PURDUE-USA-2011-0078298

PATIENT
  Age: 34 Year
  Sex: Male

DRUGS (2)
  1. MORPHINE SULFATE [Suspect]
     Indication: BACK PAIN
  2. OXYCODONE HCL [Suspect]
     Indication: BACK PAIN

REACTIONS (4)
  - DRUG DEPENDENCE [None]
  - GUN SHOT WOUND [None]
  - HOMICIDE [None]
  - INTENTIONAL DRUG MISUSE [None]
